FAERS Safety Report 7180780-5 (Version None)
Quarter: 2010Q4

REPORT INFORMATION
  Report Type: 
  Country: None (occurrence: None)
  Receive Date: 20101221
  Receipt Date: 20101219
  Transmission Date: 20110411
  Serious: Yes (Other)
  Sender: FDA-Public Use
  Company Number: IT-PFIZER INC-2010162626

PATIENT
  Age: 31 Year
  Sex: Female

DRUGS (1)
  1. DOSTINEX [Suspect]
     Indication: LACTATION INHIBITION THERAPY
     Dosage: 0.25 MG, 1X/DAY
     Route: 048
     Dates: start: 20091101, end: 20090101

REACTIONS (3)
  - CARDIAC ARREST [None]
  - COMA [None]
  - SHUNT OCCLUSION [None]
